FAERS Safety Report 9812673 (Version 4)
Quarter: 2020Q3

REPORT INFORMATION
  Report Type: Report from Study
  Country: US (occurrence: US)
  Receive Date: 20140113
  Receipt Date: 20140205
  Transmission Date: 20201104
  Serious: Yes (Hospitalization)
  Sender: FDA-Public Use
  Company Number: US-JNJFOC-20140103770

PATIENT
  Age: 80 Year
  Sex: Male
  Weight: 48 kg

DRUGS (10)
  1. HYDROMORPHONE [Concomitant]
     Active Substance: HYDROMORPHONE
     Indication: FACIAL PAIN
     Dates: start: 20131015
  2. IBUPROFEN. [Concomitant]
     Active Substance: IBUPROFEN
     Indication: FACIAL PAIN
     Route: 048
     Dates: start: 20131106
  3. IBRUTINIB [Suspect]
     Active Substance: IBRUTINIB
     Route: 048
  4. GABAPENTIN. [Concomitant]
     Active Substance: GABAPENTIN
     Indication: FACIAL PAIN
     Route: 048
     Dates: start: 20131106
  5. TAMSULOSIN [Concomitant]
     Active Substance: TAMSULOSIN
     Indication: BENIGN PROSTATIC HYPERPLASIA
     Route: 048
     Dates: start: 201201
  6. ACETAMENAPHEN [Concomitant]
     Indication: FACIAL PAIN
     Route: 048
     Dates: start: 20131015
  7. VALACYCLOVIR [Concomitant]
     Active Substance: VALACYCLOVIR HYDROCHLORIDE
     Indication: HERPES ZOSTER
     Route: 048
     Dates: start: 20131106
  8. ZOLPIDEM [Concomitant]
     Active Substance: ZOLPIDEM TARTRATE
     Indication: INSOMNIA
     Route: 048
     Dates: start: 2012
  9. IBRUTINIB [Suspect]
     Active Substance: IBRUTINIB
     Indication: CHRONIC LYMPHOCYTIC LEUKAEMIA
     Route: 048
     Dates: start: 20130220
  10. TOBRADEX [Concomitant]
     Active Substance: DEXAMETHASONE\TOBRAMYCIN
     Indication: EYE PAIN
     Route: 048
     Dates: start: 20131021

REACTIONS (1)
  - Subdural haematoma [Recovered/Resolved]

NARRATIVE: CASE EVENT DATE: 20140106
